FAERS Safety Report 8225975-4 (Version None)
Quarter: 2012Q1

REPORT INFORMATION
  Report Type: 
  Country: None (occurrence: None)
  Receive Date: 20120321
  Receipt Date: 20120308
  Transmission Date: 20120608
  Serious: Yes (Hospitalization)
  Sender: FDA-Public Use
  Company Number: GB-ABBOTT-09P-167-0795969-00

PATIENT
  Age: 36 Year
  Sex: Female

DRUGS (16)
  1. CLOZARIL [Suspect]
     Indication: SCHIZOPHRENIA
     Dosage: DAILY DOSE: 250 MILLIGRAM(S)
     Route: 048
     Dates: start: 20050501, end: 20050519
  2. CLOZARIL [Suspect]
     Dosage: DAILY DOSE: 250 MILLIGRAM(S)
     Route: 048
     Dates: start: 20060605, end: 20060713
  3. FOLIC ACID [Suspect]
     Indication: PRODUCT USED FOR UNKNOWN INDICATION
     Dosage: DAILY DOSE: 5 MILLIGRAM(S)
     Route: 048
  4. ALL OTHER THERAPEUTIC PRODUCTS [Concomitant]
     Indication: PRODUCT USED FOR UNKNOWN INDICATION
     Dosage: DAILY DOSE:  UNKNOWN
     Route: 065
  5. BENDROFLUAZIDE [Concomitant]
     Indication: HYPERTENSION
     Dosage: DAILY DOSE:  UNKNOWN
     Route: 065
  6. PERINDOPRIL ERBUMINE [Suspect]
     Indication: PRODUCT USED FOR UNKNOWN INDICATION
     Dosage: DAILY DOSE: 2 MILLIGRAM(S)
     Route: 048
  7. CLOZARIL [Suspect]
     Dosage: DAILY DOSE: 250 MILLIGRAM(S)
     Route: 048
  8. ZOPICLONE [Suspect]
     Indication: PRODUCT USED FOR UNKNOWN INDICATION
     Dosage: DAILY DOSE: 3.75 MILLIGRAM(S)
     Route: 048
  9. FESOFOR [Suspect]
     Indication: PRODUCT USED FOR UNKNOWN INDICATION
     Dosage: DAILY DOSE: 400 MILLIGRAM(S)
     Route: 048
  10. LACTULOSE [Suspect]
     Indication: PRODUCT USED FOR UNKNOWN INDICATION
     Dosage: DAILY DOSE: 10 MILLILITRE(S), AS NEEDED.
     Route: 065
  11. LANSOPRAZOLE [Suspect]
     Indication: PRODUCT USED FOR UNKNOWN INDICATION
     Dosage: DAILY DOSE: 30 MILLIGRAM(S)
     Route: 048
  12. FUROSEMIDE [Concomitant]
     Indication: HYPERTENSION
     Dosage: DAILY DOSE:  UNKNOWN
     Route: 065
  13. TRIMETHOPRIM [Suspect]
     Indication: URINARY TRACT INFECTION
     Dosage: DAILY DOSE:  UNKNOWN
     Route: 048
  14. DIAZEPAM [Suspect]
     Indication: PRODUCT USED FOR UNKNOWN INDICATION
     Dosage: DAILY DOSE:  UNKNOWN, AS NEEDED: AS NEEDED.
     Route: 065
  15. ATORVASTATIN [Concomitant]
     Indication: PRODUCT USED FOR UNKNOWN INDICATION
     Dosage: DAILY DOSE:  UNKNOWN
     Route: 065
  16. RAMIPRIL [Concomitant]
     Indication: HYPERTENSION
     Dosage: DAILY DOSE:  UNKNOWN
     Route: 065

REACTIONS (19)
  - THROMBOCYTOSIS [None]
  - STAPHYLOCOCCAL SEPSIS [None]
  - MONOCYTE COUNT INCREASED [None]
  - IRON DEFICIENCY ANAEMIA [None]
  - PHYSICAL ASSAULT [None]
  - SKIN DISORDER [None]
  - URINARY TRACT INFECTION [None]
  - BODY MASS INDEX DECREASED [None]
  - MALAISE [None]
  - ABDOMINAL TENDERNESS [None]
  - SINUS TACHYCARDIA [None]
  - DIABETES MELLITUS [None]
  - MEAN CELL VOLUME DECREASED [None]
  - CARDIAC MURMUR [None]
  - PYREXIA [None]
  - WHITE BLOOD CELL COUNT INCREASED [None]
  - NEUTROPHIL COUNT INCREASED [None]
  - HIATUS HERNIA [None]
  - CONSTIPATION [None]
